FAERS Safety Report 21407749 (Version 2)
Quarter: 2022Q4

REPORT INFORMATION
  Report Type: Spontaneous
  Country: US (occurrence: US)
  Receive Date: 20221004
  Receipt Date: 20221020
  Transmission Date: 20230113
  Serious: Yes (Hospitalization)
  Sender: FDA-Public Use
  Company Number: US-Calliditas-2022CAL00391

PATIENT
  Age: 68 Year
  Sex: Female

DRUGS (2)
  1. TARPEYO [Suspect]
     Active Substance: BUDESONIDE
     Indication: IgA nephropathy
     Dosage: 8 MG (4 MG CAPSULES) DAILY
     Route: 048
     Dates: start: 20220609
  2. LOSARTAN [Concomitant]
     Active Substance: LOSARTAN

REACTIONS (5)
  - Chest pain [Recovering/Resolving]
  - Prescribed underdose [Unknown]
  - Chest pain [Recovered/Resolved]
  - Hypertension [Recovering/Resolving]
  - Oral mucosal discolouration [Unknown]

NARRATIVE: CASE EVENT DATE: 20220801
